FAERS Safety Report 8336381-6 (Version None)
Quarter: 2012Q2

REPORT INFORMATION
  Report Type: 
  Country: None (occurrence: None)
  Receive Date: 20120504
  Receipt Date: 20120426
  Transmission Date: 20120825
  Serious: Yes (Other)
  Sender: FDA-Public Use
  Company Number: JP-VERTEX PHARMACEUTICALS INC.-AE-2012-006218

PATIENT
  Age: 63 Year
  Sex: Male

DRUGS (13)
  1. PEGINTERFERON ALFA-2A [Concomitant]
     Indication: HEPATITIS C
     Route: 058
  2. FEROTYM [Concomitant]
     Route: 048
  3. REBETOL [Concomitant]
     Route: 048
     Dates: start: 20120313, end: 20120410
  4. REBETOL [Concomitant]
     Route: 048
     Dates: start: 20120215, end: 20120228
  5. REBETOL [Concomitant]
     Route: 048
     Dates: start: 20120307, end: 20120312
  6. EPADEL S [Concomitant]
     Route: 048
  7. REBETOL [Concomitant]
     Route: 048
     Dates: start: 20120411
  8. TELAVIC (TELAPREVIR) [Suspect]
     Indication: HEPATITIS C
     Route: 048
     Dates: start: 20120117, end: 20120411
  9. CLARITIN REDITABS [Concomitant]
     Route: 048
  10. LIVALO [Concomitant]
     Route: 048
  11. REBETOL [Concomitant]
     Indication: HEPATITIS C
     Route: 048
     Dates: start: 20120117, end: 20120214
  12. REBETOL [Concomitant]
     Route: 048
     Dates: start: 20120229
  13. LIVALO [Concomitant]
     Route: 048

REACTIONS (3)
  - RENAL DISORDER [None]
  - ANAEMIA [None]
  - BLOOD CREATININE INCREASED [None]
